FAERS Safety Report 7239534-3 (Version None)
Quarter: 2011Q1

REPORT INFORMATION
  Report Type: 
  Country: None (occurrence: None)
  Receive Date: 20110121
  Receipt Date: 20110112
  Transmission Date: 20110831
  Serious: Yes (Life-Threatening, Hospitalization)
  Sender: FDA-Public Use
  Company Number: JP-MERCK-1011USA02659

PATIENT
  Age: 80 Year
  Sex: Female

DRUGS (15)
  1. ASVERIN [Concomitant]
     Indication: NASOPHARYNGITIS
     Dosage: DAILY DOSAGE UNKNOWN
     Route: 048
     Dates: start: 20101101
  2. OMEPRAZOLE [Concomitant]
     Route: 048
  3. ALOSENN [Concomitant]
     Dosage: DAILY DOSAGE UNKNOWN
     Route: 048
  4. CEFZON [Concomitant]
     Indication: NASOPHARYNGITIS
     Dosage: DAILY DOSAGE UNKNOWN
     Route: 048
     Dates: start: 20101101
  5. EBRANTIL [Concomitant]
     Indication: CYSTITIS
     Route: 048
     Dates: start: 20101105
  6. SIMVASTATIN [Concomitant]
     Indication: HYPERLIPIDAEMIA
     Route: 048
  7. POLLAKISU [Concomitant]
     Dosage: DAILY DOSAGE UNKNOWN
     Route: 048
  8. MAGMITT [Concomitant]
     Dosage: DAILY DOSAGE UNKNOWN
     Route: 048
  9. CRAVIT [Concomitant]
     Indication: CYSTITIS
     Dosage: DAILY DOSAGE UNKNOWN
     Route: 065
     Dates: start: 20101105
  10. HYZAAR [Suspect]
     Dosage: DAILY DOSAGE UNKNOWN
     Route: 048
     Dates: start: 20101112, end: 20101112
  11. RITASEND [Concomitant]
     Indication: CONSTIPATION
     Route: 048
     Dates: end: 20101108
  12. FAMOSTAGINE D [Concomitant]
     Route: 048
     Dates: end: 20101108
  13. LICORICE [Concomitant]
     Indication: CONSTIPATION
     Dosage: DAILY DOSAGE UNKNOWN
     Route: 048
     Dates: start: 20100101, end: 20100201
  14. HYZAAR [Suspect]
     Indication: HYPERTENSION
     Dosage: DAILY DOSAGE UNKNOWN
     Route: 048
     Dates: start: 20100312, end: 20101107
  15. MELDEST [Concomitant]
     Indication: ARRHYTHMIA
     Route: 048
     Dates: end: 20101108

REACTIONS (4)
  - HYPONATRAEMIA [None]
  - ALTERED STATE OF CONSCIOUSNESS [None]
  - HYPOCHLORAEMIA [None]
  - HYPOKALAEMIA [None]
